FAERS Safety Report 9292550 (Version 1)
Quarter: 2013Q2

REPORT INFORMATION
  Report Type: Spontaneous
  Country: US (occurrence: None)
  Receive Date: 20130515
  Receipt Date: 20130515
  Transmission Date: 20140414
  Serious: Yes (Other)
  Sender: FDA-Public Use
  Company Number: None

PATIENT
  Age: 64 Year
  Sex: Male

DRUGS (3)
  1. CIPROFLOXACIN [Suspect]
     Dates: start: 20101224, end: 20110108
  2. PIPERACILLIN / TAZOBACTAM [Suspect]
     Dates: start: 20101219, end: 20101223
  3. VANCOMYCIN [Suspect]
     Dates: start: 20101219, end: 20110103

REACTIONS (6)
  - Drug-induced liver injury [None]
  - Jaundice [None]
  - Drug reaction with eosinophilia and systemic symptoms [None]
  - Renal failure acute [None]
  - Hepatitis A antibody positive [None]
  - Cytomegalovirus test positive [None]
